FAERS Safety Report 21598113 (Version 3)
Quarter: 2024Q4

REPORT INFORMATION
  Report Type: Spontaneous
  Country: US (occurrence: US)
  Receive Date: 20221115
  Receipt Date: 20241015
  Transmission Date: 20250114
  Serious: Yes (Other)
  Sender: NOVARTIS
  Company Number: US-002147023-NVSC2022US257285

PATIENT
  Age: 84 Year
  Sex: Male
  Weight: 75.3 kg

DRUGS (1)
  1. PLUVICTO [Suspect]
     Active Substance: LUTETIUM LU-177 VIPIVOTIDE TETRAXETAN
     Indication: Prostate cancer
     Dosage: 200 MCI
     Route: 042
     Dates: start: 20220915, end: 20221028

REACTIONS (5)
  - Prostate cancer metastatic [Unknown]
  - Metastases to liver [Unknown]
  - Ill-defined disorder [Not Recovered/Not Resolved]
  - General physical health deterioration [Unknown]
  - Fatigue [Unknown]

NARRATIVE: CASE EVENT DATE: 20221202
